FAERS Safety Report 6730777-1 (Version None)
Quarter: 2010Q2

REPORT INFORMATION
  Report Type: 
  Country: None (occurrence: None)
  Receive Date: 20100518
  Receipt Date: 20100513
  Transmission Date: 20101027
  Serious: Yes (Death)
  Sender: FDA-Public Use
  Company Number: TR-BRISTOL-MYERS SQUIBB COMPANY-14985378

PATIENT
  Age: 54 Year
  Sex: Male
  Weight: 94 kg

DRUGS (3)
  1. CETUXIMAB [Suspect]
     Indication: NON-SMALL CELL LUNG CANCER
     Dosage: STRENGTH: 5MG/ML
     Route: 042
     Dates: start: 20100113, end: 20100210
  2. CISPLATIN [Suspect]
     Indication: NON-SMALL CELL LUNG CANCER
     Dosage: REC INF: 10FEB2010
     Route: 042
     Dates: start: 20100113, end: 20100210
  3. GEMCITABINE HCL [Suspect]
     Indication: NON-SMALL CELL LUNG CANCER
     Dosage: REC INF: 10FEB10 ON DAY 1, 8 OF 21 DAY CYCLE
     Route: 042
     Dates: start: 20100113, end: 20100210

REACTIONS (1)
  - PULMONARY HAEMORRHAGE [None]
